FAERS Safety Report 4459691-1 (Version None)
Quarter: 2004Q3

REPORT INFORMATION
  Report Type: 
  Country: None (occurrence: None)
  Receive Date: 20040923
  Receipt Date: 20040913
  Transmission Date: 20050211
  Serious: Yes (Death, Hospitalization)
  Sender: FDA-Public Use
  Company Number: US-JNJFOC20040903669

PATIENT
  Age: 53 Year
  Sex: Male

DRUGS (3)
  1. TYLENOL EXTRA STRENGTH (ACETAMINOPHEN) TABLETS [Suspect]
     Indication: BACK PAIN
     Dosage: 4-5 DAILY
  2. VICODIN [Suspect]
     Indication: BACK PAIN
     Dosage: 4-5 TABLETS DAILY
  3. ACETAMINOPHEN/OXYCODONE (OXYCOCET) [Suspect]
     Indication: BACK PAIN
     Dosage: 4-5 TABLETS DAILY

REACTIONS (11)
  - ALANINE AMINOTRANSFERASE INCREASED [None]
  - ASPARTATE AMINOTRANSFERASE INCREASED [None]
  - BRAIN OEDEMA [None]
  - ENCEPHALOPATHY [None]
  - HAEMATEMESIS [None]
  - HYPERHIDROSIS [None]
  - HYPOTENSION [None]
  - IMPAIRED DRIVING ABILITY [None]
  - INTENTIONAL MISUSE [None]
  - INTERNATIONAL NORMALISED RATIO INCREASED [None]
  - PROTHROMBIN TIME PROLONGED [None]
